FAERS Safety Report 18454006 (Version 1)
Quarter: 2020Q4

REPORT INFORMATION
  Report Type: Spontaneous
  Country: CA (occurrence: CA)
  Receive Date: 20201102
  Receipt Date: 20201102
  Transmission Date: 20210114
  Serious: Yes (Death, Hospitalization, Other)
  Sender: FDA-Public Use
  Company Number: CA-ASTRAZENECA-2020SF41349

PATIENT
  Age: 83 Year
  Sex: Female
  Weight: 55 kg

DRUGS (27)
  1. METHYLPREDNISOLONE. [Concomitant]
     Active Substance: METHYLPREDNISOLONE
     Indication: PREMEDICATION
     Dosage: 100.0MG UNKNOWN
     Route: 042
  2. ACETAMINOPHEN. [Concomitant]
     Active Substance: ACETAMINOPHEN
     Indication: PREMEDICATION
     Dosage: 650.0MG UNKNOWN
     Route: 048
  3. CLOPIDOGREL BISULFATE. [Concomitant]
     Active Substance: CLOPIDOGREL BISULFATE
     Route: 065
  4. PLAQUENIL [Concomitant]
     Active Substance: HYDROXYCHLOROQUINE SULFATE
     Route: 065
  5. PREDNISONE. [Concomitant]
     Active Substance: PREDNISONE
     Route: 065
  6. RAMIPRIL. [Concomitant]
     Active Substance: RAMIPRIL
     Route: 065
  7. RITUXIMAB. [Suspect]
     Active Substance: RITUXIMAB
     Indication: RHEUMATOID ARTHRITIS
     Dosage: 1000.0MG UNKNOWN
     Route: 042
  8. ACTONEL [Concomitant]
     Active Substance: RISEDRONATE SODIUM
     Indication: RHEUMATOID ARTHRITIS
     Dosage: UNKNOWN
     Route: 065
  9. VITAMIN C [Concomitant]
     Active Substance: ASCORBIC ACID
     Route: 065
  10. BISOPROLOL [Suspect]
     Active Substance: BISOPROLOL
     Indication: CARDIAC DISORDER
     Dosage: 6.0MG UNKNOWN
     Route: 048
  11. SEPTRA [Concomitant]
     Active Substance: SULFAMETHOXAZOLE\TRIMETHOPRIM
     Route: 065
  12. MACROBID [Suspect]
     Active Substance: NITROFURANTOIN\NITROFURANTOIN MONOHYDRATE
     Indication: CYSTITIS
     Route: 065
  13. CRANBERRY. [Concomitant]
     Active Substance: CRANBERRY
     Route: 065
  14. DIPHENHYDRAMINE HYDROCHLORIDE. [Concomitant]
     Active Substance: DIPHENHYDRAMINE HYDROCHLORIDE
     Indication: PREMEDICATION
     Dosage: 50.0MG UNKNOWN
     Route: 048
  15. HYDROXYCHLOROQUINE SULFATE. [Concomitant]
     Active Substance: HYDROXYCHLOROQUINE SULFATE
     Indication: RHEUMATOID ARTHRITIS
     Dosage: 200.0MG UNKNOWN
     Route: 048
  16. CLOPIDOGREL [Concomitant]
     Active Substance: CLOPIDOGREL BISULFATE
     Indication: TRANSIENT ISCHAEMIC ATTACK
     Dosage: 75.0MG UNKNOWN
     Route: 048
  17. DOMPERIDONE [Concomitant]
     Active Substance: DOMPERIDONE
     Route: 065
  18. PANTOLOC [Concomitant]
     Active Substance: PANTOPRAZOLE SODIUM
     Route: 065
  19. SPIRONOLACTONE. [Concomitant]
     Active Substance: SPIRONOLACTONE
     Route: 065
  20. ESOMEPRAZOLE. [Suspect]
     Active Substance: ESOMEPRAZOLE MAGNESIUM
     Indication: GASTROOESOPHAGEAL REFLUX DISEASE
     Route: 048
  21. ACTONEL [Concomitant]
     Active Substance: RISEDRONATE SODIUM
     Indication: RHEUMATOID ARTHRITIS
     Dosage: 35.0MG UNKNOWN
     Route: 048
  22. ENBREL [Concomitant]
     Active Substance: ETANERCEPT
     Route: 065
  23. SULFATRIM [Concomitant]
     Active Substance: SULFAMETHOXAZOLE\TRIMETHOPRIM
     Route: 065
  24. RITUXIMAB. [Suspect]
     Active Substance: RITUXIMAB
     Indication: RHEUMATOID ARTHRITIS
     Dosage: 677 DAYS1000.0MG UNKNOWN
     Route: 042
  25. CIPROFLOXACIN. [Concomitant]
     Active Substance: CIPROFLOXACIN
     Route: 065
  26. LASIX [Concomitant]
     Active Substance: FUROSEMIDE
     Route: 065
  27. TYLENOL ARTHRITIS PAIN [Concomitant]
     Active Substance: ACETAMINOPHEN
     Route: 065

REACTIONS (30)
  - Abdominal pain [Fatal]
  - Chest injury [Fatal]
  - Heart rate increased [Fatal]
  - Oxygen saturation decreased [Fatal]
  - Gastroenteritis viral [Fatal]
  - Musculoskeletal stiffness [Fatal]
  - Pain [Fatal]
  - Pneumonia [Fatal]
  - Swelling [Fatal]
  - Decreased appetite [Fatal]
  - Dyspnoea exertional [Fatal]
  - Gastrooesophageal reflux disease [Fatal]
  - Inflammation [Fatal]
  - Cardiac disorder [Fatal]
  - Interstitial lung disease [Fatal]
  - Joint swelling [Fatal]
  - Syncope [Fatal]
  - Cystitis [Fatal]
  - Drug hypersensitivity [Fatal]
  - Fluid retention [Fatal]
  - Weight decreased [Fatal]
  - Death [Fatal]
  - Respiratory rate increased [Fatal]
  - Vomiting [Fatal]
  - Arthralgia [Fatal]
  - Dyspnoea [Fatal]
  - Fall [Fatal]
  - C-reactive protein increased [Fatal]
  - Nausea [Fatal]
  - Urinary tract infection [Fatal]
